FAERS Safety Report 5663700-1 (Version None)
Quarter: 2008Q1

REPORT INFORMATION
  Report Type: 
  Country: None (occurrence: None)
  Receive Date: 20080307
  Receipt Date: 20080222
  Transmission Date: 20080703
  Serious: Yes (Death, Hospitalization)
  Sender: FDA-Public Use
  Company Number: 2008P1000027

PATIENT
  Age: 80 Year
  Sex: Male

DRUGS (8)
  1. BUSULFAN (BUSULFAN) [Suspect]
     Indication: STEM CELL TRANSPLANT
     Dosage: 30.68 ML;QD;IV
     Route: 042
     Dates: start: 20070719, end: 20070722
  2. CYCLOPHOSPHAMIDE [Suspect]
     Dosage: 3500 MG;QD;IV
     Route: 042
     Dates: start: 20070723, end: 20070724
  3. VALPROATE SODIUM [Concomitant]
  4. FILGRASTIM [Concomitant]
  5. METHOTREXATE [Concomitant]
  6. CYCLOSPORINE [Concomitant]
  7. VORICONAZOLE [Concomitant]
  8. SULFAMETHOXAZOLE AND TRIMETHOPRIM [Concomitant]

REACTIONS (32)
  - ACUTE GRAFT VERSUS HOST DISEASE IN INTESTINE [None]
  - ACUTE GRAFT VERSUS HOST DISEASE IN LIVER [None]
  - ACUTE GRAFT VERSUS HOST DISEASE IN SKIN [None]
  - AMNESIA [None]
  - ANGIOPATHY [None]
  - BK VIRUS INFECTION [None]
  - BLOOD CULTURE POSITIVE [None]
  - BLOOD PRESSURE INCREASED [None]
  - BONE MARROW TRANSPLANT [None]
  - CANDIDIASIS [None]
  - CARDIAC FAILURE [None]
  - CATHETER RELATED INFECTION [None]
  - CENTRAL LINE INFECTION [None]
  - CYTOMEGALOVIRUS INFECTION [None]
  - DIABETES INSIPIDUS [None]
  - FEBRILE NEUTROPENIA [None]
  - FEELING HOT [None]
  - FLAIL CHEST [None]
  - GRAFT VERSUS HOST DISEASE [None]
  - HEART RATE INCREASED [None]
  - HYPERNATRAEMIA [None]
  - INTERSTITIAL LUNG DISEASE [None]
  - NEUTROPHIL COUNT DECREASED [None]
  - NO THERAPEUTIC RESPONSE [None]
  - PNEUMOTHORAX [None]
  - PULMONARY CONGESTION [None]
  - RESPIRATORY FAILURE [None]
  - STOMATITIS [None]
  - SUPRAVENTRICULAR TACHYCARDIA [None]
  - THROMBOTIC MICROANGIOPATHY [None]
  - VIRAL HAEMORRHAGIC CYSTITIS [None]
  - WOLFF-PARKINSON-WHITE SYNDROME [None]
